FAERS Safety Report 21989711 (Version 2)
Quarter: 2024Q3

REPORT INFORMATION
  Report Type: Spontaneous
  Country: BR (occurrence: BR)
  Receive Date: 20230214
  Receipt Date: 20240827
  Transmission Date: 20241016
  Serious: No
  Sender: CELLTRION
  Company Number: BR-CELLTRION INC.-2023BR002876

PATIENT

DRUGS (7)
  1. TRUXIMA [Suspect]
     Active Substance: RITUXIMAB-ABBS
     Indication: Dermatomyositis
     Dosage: 1000 MG (2 VIALS OF 500 MG EACH), EVERY 6 MONTHS
     Route: 042
     Dates: start: 202301
  2. TRUXIMA [Suspect]
     Active Substance: RITUXIMAB-ABBS
     Dosage: 1000 MG (2 VIALS OF 500 MG EACH), EVERY 6 MONTHS
     Route: 042
  3. TRUXIMA [Suspect]
     Active Substance: RITUXIMAB-ABBS
     Dosage: 1000 MG (2 VIALS OF 500 MG EACH), EVERY 6 MONTHS
     Route: 042
  4. PREDNISONE [Concomitant]
     Active Substance: PREDNISONE
     Indication: Dermatomyositis
     Dosage: 2 CAPSULES PER DAY (START: 2 YEARS AGO)
     Route: 048
  5. CYCLOSPORINE [Concomitant]
     Active Substance: CYCLOSPORINE
     Indication: Dermatomyositis
     Dosage: 3 CAPSULES PER DAY (START: 15 DAYS AGO)
     Route: 048
  6. DIVENA [Concomitant]
     Indication: Dermatomyositis
     Dosage: 1 CAPSULES PER DAY (START: 15 DAYS AGO)
     Route: 048
  7. FIXA-CAL [Concomitant]
     Indication: Blood calcium
     Dosage: 1 CAPSULE PER DAY (START DAY: 15 DAYS AGO)
     Route: 048

REACTIONS (1)
  - Off label use [Unknown]
